FAERS Safety Report 8825776 (Version 1)
Quarter: 2012Q4

REPORT INFORMATION
  Report Type: 
  Country: US (occurrence: US)
  Receive Date: 20121004
  Receipt Date: 20121004
  Transmission Date: 20130627
  Serious: No
  Sender: FDA-Public Use
  Company Number: US-TEVA-327896USA

PATIENT
  Sex: Female

DRUGS (3)
  1. FOLINIC ACID [Suspect]
     Indication: CHEMOTHERAPY
  2. FLUOROURACIL [Suspect]
     Indication: CHEMOTHERAPY
  3. OXALIPLATIN [Suspect]
     Indication: CHEMOTHERAPY

REACTIONS (1)
  - Organising pneumonia [Unknown]
